FAERS Safety Report 5519234-8 (Version None)
Quarter: 2007Q4

REPORT INFORMATION
  Report Type: 
  Country: None (occurrence: None)
  Receive Date: 20071116
  Receipt Date: 20071105
  Transmission Date: 20080405
  Serious: Yes (Hospitalization)
  Sender: FDA-Public Use
  Company Number: FR-BRISTOL-MYERS SQUIBB COMPANY-13979679

PATIENT
  Age: 61 Year
  Sex: Male

DRUGS (6)
  1. ENDOXAN INJ [Suspect]
     Indication: LYMPHOMA
     Route: 042
     Dates: start: 20020301, end: 20020513
  2. METHOTREXATE [Suspect]
     Indication: LYMPHOMA
     Route: 042
     Dates: start: 20020610, end: 20020710
  3. ADRIBLASTINE [Suspect]
     Indication: LYMPHOMA
     Route: 042
     Dates: start: 20020301, end: 20020513
  4. VELBE [Suspect]
     Indication: LYMPHOMA
     Route: 042
     Dates: start: 20020301, end: 20020513
  5. BLEOMYCIN [Concomitant]
     Dates: start: 20020301, end: 20020513
  6. PREDNISOLONE [Concomitant]
     Dates: start: 20020301, end: 20020513

REACTIONS (1)
  - ACUTE MYELOID LEUKAEMIA [None]
